FAERS Safety Report 20317467 (Version 1)
Quarter: 2022Q1

REPORT INFORMATION
  Report Type: Report from Study
  Country: GB (occurrence: GB)
  Receive Date: 20220110
  Receipt Date: 20220110
  Transmission Date: 20220423
  Serious: Yes (Other)
  Sender: FDA-Public Use
  Company Number: GB-JNJFOC-20211267163

PATIENT
  Age: 4 Decade
  Sex: Female

DRUGS (3)
  1. STELARA [Suspect]
     Active Substance: USTEKINUMAB
     Indication: Crohn^s disease
     Route: 058
     Dates: start: 20191118
  2. STELARA [Suspect]
     Active Substance: USTEKINUMAB
  3. MORPHINE [Concomitant]
     Active Substance: MORPHINE

REACTIONS (7)
  - Colostomy [Unknown]
  - Paraesthesia [Unknown]
  - Hypoaesthesia [Unknown]
  - Vertigo [Unknown]
  - Pain [Unknown]
  - Colour blindness [Unknown]
  - Visual impairment [Unknown]
